FAERS Safety Report 9182493 (Version 1)
Quarter: 2013Q1

REPORT INFORMATION
  Report Type: Spontaneous
  Country: US (occurrence: None)
  Receive Date: 20130321
  Receipt Date: 20130321
  Transmission Date: 20140127
  Serious: Yes (Life-Threatening)
  Sender: FDA-Public Use
  Company Number: None

PATIENT
  Age: 78 Year
  Sex: Male
  Weight: 77.11 kg

DRUGS (1)
  1. CHLORPHENIRAMINE\HYDROCODONE [Suspect]
     Dosage: 5 ML. TWICE DAILY FOR 7 DAYS MOUTH
     Route: 048
     Dates: start: 20121229

REACTIONS (2)
  - Dyspnoea [None]
  - Cough [None]
